FAERS Safety Report 5728921-8 (Version None)
Quarter: 2008Q2

REPORT INFORMATION
  Report Type: 
  Country: None (occurrence: None)
  Receive Date: 20080430
  Receipt Date: 20080123
  Transmission Date: 20081010
  Serious: No
  Sender: FDA-Public Use
  Company Number: 2008PV034013

PATIENT
  Age: 70 Year
  Sex: Male

DRUGS (3)
  1. SYMLIN [Suspect]
     Indication: TYPE 2 DIABETES MELLITUS
     Dosage: 120 MCG;TID;SC
     Route: 058
     Dates: start: 20071001
  2. ANTI-DIABETICS [Concomitant]
  3. NOVOLOG [Concomitant]

REACTIONS (2)
  - INJECTION SITE PAIN [None]
  - INJECTION SITE RASH [None]
